FAERS Safety Report 15782413 (Version 3)
Quarter: 2019Q1

REPORT INFORMATION
  Report Type: Spontaneous
  Country: US (occurrence: US)
  Receive Date: 20190102
  Receipt Date: 20190204
  Transmission Date: 20190417
  Serious: No
  Sender: FDA-Public Use
  Company Number: US-MALLINCKRODT-T201805210

PATIENT
  Sex: Female

DRUGS (4)
  1. DEPO-MEDROL [Concomitant]
     Active Substance: METHYLPREDNISOLONE ACETATE
     Indication: PRODUCT USED FOR UNKNOWN INDICATION
     Dosage: ONE TIME DOSE
     Route: 065
     Dates: start: 201801
  2. H.P. ACTHAR [Suspect]
     Active Substance: CORTICOTROPIN
     Indication: SYSTEMIC LUPUS ERYTHEMATOSUS
     Dosage: 80 UNITS, 1 ML, TWICE WEEKLY, AS DIRECTED
     Route: 058
     Dates: start: 201803, end: 2018
  3. TORADOL [Concomitant]
     Active Substance: KETOROLAC TROMETHAMINE
     Indication: PRODUCT USED FOR UNKNOWN INDICATION
     Dosage: ONE TIME DOSE
     Route: 065
  4. H.P. ACTHAR [Suspect]
     Active Substance: CORTICOTROPIN
     Indication: CUTANEOUS LUPUS ERYTHEMATOSUS
     Dosage: 80 UNITS, 1 ML, TWICE WEEKLY AS DIRECTED
     Route: 058
     Dates: start: 201808

REACTIONS (8)
  - Injection site swelling [Unknown]
  - Paraesthesia [Unknown]
  - Weight increased [Unknown]
  - Injection site pruritus [Unknown]
  - Drug ineffective [Unknown]
  - Therapy cessation [Unknown]
  - Hypoaesthesia [Unknown]
  - Pyrexia [Unknown]
